FAERS Safety Report 17854823 (Version 1)
Quarter: 2020Q2

REPORT INFORMATION
  Report Type: Spontaneous
  Country: US (occurrence: US)
  Receive Date: 20200602
  Receipt Date: 20200602
  Transmission Date: 20200714
  Serious: Yes (Disabling)
  Sender: FDA-Public Use
  Company Number: None

PATIENT
  Age: 51 Year
  Sex: Female
  Weight: 74.25 kg

DRUGS (4)
  1. CLONAZEPAM 25MG [Concomitant]
  2. VITAMIN D3 5000 IU [Concomitant]
  3. PANTOPRAZOLE 40MG [Concomitant]
     Active Substance: PANTOPRAZOLE SODIUM
  4. ZONISAMIDE CIP [Suspect]
     Active Substance: ZONISAMIDE
     Indication: EPILEPSY
     Dosage: ?          QUANTITY:3 CAPSULE(S);?
     Route: 048

REACTIONS (13)
  - Hypersensitivity [None]
  - Pain [None]
  - Discomfort [None]
  - Swelling [None]
  - Insomnia [None]
  - Decreased appetite [None]
  - Nausea [None]
  - Balance disorder [None]
  - Paraesthesia [None]
  - Chills [None]
  - Multiple allergies [None]
  - Hypoaesthesia [None]
  - Feeling hot [None]

NARRATIVE: CASE EVENT DATE: 20190909
